FAERS Safety Report 7860335-7 (Version None)
Quarter: 2011Q4

REPORT INFORMATION
  Report Type: 
  Country: None (occurrence: None)
  Receive Date: 20111027
  Receipt Date: 20111021
  Transmission Date: 20120403
  Serious: Yes (Hospitalization, Other)
  Sender: FDA-Public Use
  Company Number: JP-CEPHALON-2011004991

PATIENT
  Sex: Male
  Weight: 63 kg

DRUGS (11)
  1. MAGNESIUM OXIDE [Concomitant]
  2. NICORANDIL [Concomitant]
  3. FUROSEMIDE [Concomitant]
  4. DIGOXIN [Concomitant]
  5. FAMOTIDINE [Concomitant]
  6. BENDAMUSTINE HCL [Suspect]
     Indication: MANTLE CELL LYMPHOMA
     Route: 042
     Dates: start: 20110714
  7. RITUXIMAB [Concomitant]
  8. BROTIZOLAM [Concomitant]
  9. CILOSTAZOL [Concomitant]
  10. WARFARIN SODIUM [Concomitant]
  11. BISOPROLOL FUMARATE [Concomitant]

REACTIONS (2)
  - BACTERAEMIA [None]
  - NEUTROPHIL COUNT DECREASED [None]
